FAERS Safety Report 4772125-2 (Version None)
Quarter: 2005Q3

REPORT INFORMATION
  Report Type: 
  Country: None (occurrence: None)
  Receive Date: 20050919
  Receipt Date: 20050909
  Transmission Date: 20060218
  Serious: Yes (Hospitalization)
  Sender: FDA-Public Use
  Company Number: US-BOEHRINGER INGELHEIM PHARMACEUTICALS, INC.-2005-BP-15928BP

PATIENT
  Age: 46 Year
  Sex: Male
  Weight: 105.23 kg

DRUGS (5)
  1. MICARDIS HCT [Suspect]
     Indication: HYPERTENSION
     Dates: end: 20050617
  2. IMURAN [Concomitant]
     Dates: start: 20050608
  3. PROZAC [Concomitant]
     Dates: start: 20050608
  4. ZYPREXA [Concomitant]
     Dates: start: 20050608
  5. FLEXERIL [Concomitant]
     Dates: start: 20050608

REACTIONS (2)
  - ASTHENIA [None]
  - RENAL FAILURE [None]
